FAERS Safety Report 4687385-6 (Version None)
Quarter: 2005Q2

REPORT INFORMATION
  Report Type: 
  Country: None (occurrence: None)
  Receive Date: 20050608
  Receipt Date: 20050526
  Transmission Date: 20051028
  Serious: Yes (Other)
  Sender: FDA-Public Use
  Company Number: 040521-0000360

PATIENT
  Age: 47 Year
  Sex: Male

DRUGS (8)
  1. DESOXYN [Suspect]
     Indication: ATTENTION DEFICIT/HYPERACTIVITY DISORDER
     Dosage: 15 MG; PO
     Route: 048
     Dates: start: 19950511, end: 19990101
  2. DEXEDRINE [Concomitant]
  3. ADDERALL [Concomitant]
  4. DHEA [Concomitant]
  5. CELEXA [Concomitant]
  6. PRILOSEC [Concomitant]
  7. IBUPROFEN [Concomitant]
  8. NAPROSYN [Concomitant]

REACTIONS (2)
  - HAIRY CELL LEUKAEMIA [None]
  - PANCYTOPENIA [None]
